FAERS Safety Report 25068873 (Version 1)
Quarter: 2025Q1

REPORT INFORMATION
  Report Type: Spontaneous
  Country: US (occurrence: None)
  Receive Date: 20250312
  Receipt Date: 20250312
  Transmission Date: 20250408
  Serious: Yes (Congenital Anomaly)
  Sender: FDA-CTU
  Company Number: None

PATIENT
  Age: 0 Year
  Sex: Female
  Weight: 3.91 kg

DRUGS (6)
  1. QUETIAPINE [Suspect]
     Active Substance: QUETIAPINE
     Indication: Product used for unknown indication
     Dates: start: 20220411
  2. TRAZODONE [Suspect]
     Active Substance: TRAZODONE HYDROCHLORIDE
     Dates: start: 20211122
  3. BUPROPION [Suspect]
     Active Substance: BUPROPION
     Dates: start: 20210927
  4. LORAZEPAM [Suspect]
     Active Substance: LORAZEPAM
     Dates: start: 20210927, end: 20211025
  5. AMOXICILLIN [Suspect]
     Active Substance: AMOXICILLIN
  6. AZITHROMYCIN [Suspect]
     Active Substance: AZITHROMYCIN

REACTIONS (6)
  - Maternal drugs affecting foetus [None]
  - Caesarean section [None]
  - Congenital hypoplasia of depressor angularis oris muscle [None]
  - Asymmetric crying facies [None]
  - DiGeorge^s syndrome [None]
  - Kidney malformation [None]

NARRATIVE: CASE EVENT DATE: 20220626
